FAERS Safety Report 4999843-5 (Version None)
Quarter: 2006Q2

REPORT INFORMATION
  Report Type: 
  Country: None (occurrence: None)
  Receive Date: 20060509
  Receipt Date: 20060424
  Transmission Date: 20061013
  Serious: Yes (Hospitalization)
  Sender: FDA-Public Use
  Company Number: DSA_70888_2006

PATIENT
  Age: 54 Year
  Sex: Male
  Weight: 95.2554 kg

DRUGS (19)
  1. ROXICODONE [Suspect]
     Dosage: DF QDAY PO
     Route: 048
     Dates: start: 20051027, end: 20060219
  2. ACETAMINOPHEN W/ PROPOXYPHENE HCL [Suspect]
     Indication: BACK PAIN
     Dosage: DF
     Dates: start: 20040101, end: 20060219
  3. PERCOCET [Suspect]
     Dosage: DF
     Dates: start: 20050205, end: 20060219
  4. CEP-25608 [Suspect]
     Indication: BREAKTHROUGH PAIN
     Dosage: 800 MCG PRN PO
     Route: 048
     Dates: start: 20051230, end: 20060219
  5. MELOXICAM [Concomitant]
  6. ATORVASTATIN [Concomitant]
  7. GLYBURIDE [Concomitant]
  8. SERTRALINE HCL [Concomitant]
  9. ASPIRIN [Concomitant]
  10. CLOPIDOGREL [Concomitant]
  11. METOPROLOL TARTRATE [Concomitant]
  12. NIACIN SUSTAINED RELEASE [Concomitant]
  13. LOVASTATIN [Concomitant]
  14. NITRO PASTE [Concomitant]
  15. TRIAMTERENE AND HYDROCHLOROTHIAZIDE [Concomitant]
  16. LAMICTAL [Concomitant]
  17. SKELAXIN [Concomitant]
  18. ZOLOFT [Concomitant]
  19. SEROQUEL [Concomitant]

REACTIONS (14)
  - AGITATION [None]
  - BUNDLE BRANCH BLOCK LEFT [None]
  - BUNDLE BRANCH BLOCK RIGHT [None]
  - DISORIENTATION [None]
  - DRUG WITHDRAWAL SYNDROME [None]
  - INCORRECT DOSE ADMINISTERED [None]
  - LOSS OF CONSCIOUSNESS [None]
  - MENTAL STATUS CHANGES [None]
  - MUSCLE SPASMS [None]
  - MUSCLE TWITCHING [None]
  - OVERDOSE [None]
  - RESPIRATORY DISTRESS [None]
  - SINUS TACHYCARDIA [None]
  - TREATMENT NONCOMPLIANCE [None]
